FAERS Safety Report 17665198 (Version 1)
Quarter: 2020Q2

REPORT INFORMATION
  Report Type: Spontaneous
  Country: US (occurrence: US)
  Receive Date: 20200413
  Receipt Date: 20200413
  Transmission Date: 20200713
  Serious: No
  Sender: FDA-Public Use
  Company Number: None

PATIENT
  Age: 73 Year
  Sex: Male
  Weight: 74.39 kg

DRUGS (19)
  1. MULTIVITAMIN ADULT, ORAL [Concomitant]
  2. FLEET ENEMA 7 - 19MG, RECTALLY [Concomitant]
  3. FAMOTIDINE 40MG, ORAL [Concomitant]
  4. PANTOPRAZOLE 40MG, ORAL [Concomitant]
  5. TEMOZOLOMIDE. [Suspect]
     Active Substance: TEMOZOLOMIDE
     Indication: BRAIN NEOPLASM MALIGNANT
     Route: 048
     Dates: start: 20200306, end: 20200413
  6. MILK OF MAGNESIUM, ORAL [Concomitant]
  7. THIAMINE 100MG, ORAL [Concomitant]
  8. ATORVASTATIN 80MG, ORAL [Concomitant]
  9. FOLIC ACID 1MG, ORAL [Concomitant]
  10. BISACODYL 10MG, ORAL [Concomitant]
  11. NIFEDIPINE ER 30MG, ORAL [Concomitant]
  12. ATENOLOL 50MG, ORAL [Concomitant]
  13. LISINOPRIL 40MG, ORAL [Concomitant]
  14. CLONIDINE 0.1MG, ORAL [Concomitant]
  15. LEVETIRACETAM, 750MG, ORAL [Concomitant]
  16. LORAZEPAM 0.5MG ,ORAL [Concomitant]
  17. ACETAMINOPHEN 350MG, ORAL [Concomitant]
  18. DEXAMETHASONE 4MG, ORAL [Concomitant]
  19. VENLAFAXINE 50MG, ORAL [Concomitant]

REACTIONS (1)
  - Brain neoplasm malignant [None]

NARRATIVE: CASE EVENT DATE: 20200413
